FAERS Safety Report 9799137 (Version 1)
Quarter: 2014Q1

REPORT INFORMATION
  Report Type: Spontaneous
  Country: US (occurrence: US)
  Receive Date: 20140106
  Receipt Date: 20140106
  Transmission Date: 20141002
  Serious: Yes (Other)
  Sender: FDA-Public Use
  Company Number: US-BAYER-2013-159610

PATIENT
  Age: 26 Year
  Sex: 0

DRUGS (2)
  1. ALEVE CAPLET [Suspect]
     Indication: MIGRAINE
  2. ALEVE CAPLET [Suspect]
     Indication: BACK PAIN

REACTIONS (1)
  - Drug dependence [None]
